FAERS Safety Report 6828919-2 (Version None)
Quarter: 2010Q3

REPORT INFORMATION
  Report Type: 
  Country: None (occurrence: None)
  Receive Date: 20100709
  Receipt Date: 20070222
  Transmission Date: 20110219
  Serious: No
  Sender: FDA-Public Use
  Company Number: US-PFIZER INC-2007015759

PATIENT
  Sex: Female
  Weight: 72.57 kg

DRUGS (9)
  1. CHANTIX [Suspect]
     Dates: start: 20070214, end: 20070221
  2. SYNTHROID [Concomitant]
  3. PLAVIX [Concomitant]
  4. ACETYLSALICYLIC ACID [Concomitant]
  5. ATACAND [Concomitant]
  6. CALCIUM CARBONATE [Concomitant]
  7. VITAMIN D [Concomitant]
  8. LORAZEPAM [Concomitant]
  9. CRESTOR [Concomitant]

REACTIONS (5)
  - DIZZINESS [None]
  - HEAD DISCOMFORT [None]
  - NAUSEA [None]
  - SINUS CONGESTION [None]
  - VERTIGO [None]
